FAERS Safety Report 19693843 (Version 1)
Quarter: 2021Q3

REPORT INFORMATION
  Report Type: Spontaneous
  Country: US (occurrence: US)
  Receive Date: 20210812
  Receipt Date: 20210812
  Transmission Date: 20211014
  Serious: No
  Sender: FDA-Public Use
  Company Number: US-EISAI MEDICAL RESEARCH-EC-2021-097515

PATIENT
  Age: 57 Year
  Sex: Female

DRUGS (2)
  1. HALAVEN [Suspect]
     Active Substance: ERIBULIN MESYLATE
     Indication: BREAST CANCER METASTATIC
     Route: 041
     Dates: start: 2021, end: 2021
  2. HALAVEN [Suspect]
     Active Substance: ERIBULIN MESYLATE
     Route: 041
     Dates: start: 2021

REACTIONS (7)
  - Feeling abnormal [Recovered/Resolved]
  - Paraesthesia [Recovering/Resolving]
  - Gait disturbance [Not Recovered/Not Resolved]
  - Neuropathy peripheral [Not Recovered/Not Resolved]
  - Muscular weakness [Not Recovered/Not Resolved]
  - Tinnitus [Recovered/Resolved]
  - Balance disorder [Not Recovered/Not Resolved]

NARRATIVE: CASE EVENT DATE: 2021
